FAERS Safety Report 7792183-0 (Version None)
Quarter: 2011Q4

REPORT INFORMATION
  Report Type: 
  Country: None (occurrence: None)
  Receive Date: 20111003
  Receipt Date: 20111003
  Transmission Date: 20120403
  Serious: Yes (Hospitalization)
  Sender: FDA-Public Use
  Company Number: None

PATIENT
  Sex: Female
  Weight: 67.3 kg

DRUGS (1)
  1. GAMMAGARD LIQUID [Suspect]
     Indication: RADIAL NERVE PALSY
     Dosage: 27.5G
     Route: 041
     Dates: start: 20110926, end: 20110927

REACTIONS (1)
  - MENINGITIS ASEPTIC [None]
